FAERS Safety Report 13894262 (Version 1)
Quarter: 2017Q3

REPORT INFORMATION
  Report Type: Spontaneous
  Country: US (occurrence: None)
  Receive Date: 20170816
  Receipt Date: 20170816
  Transmission Date: 20171127
  Serious: Yes (Hospitalization)
  Sender: FDA-Public Use
  Company Number: None

PATIENT
  Age: 71 Year
  Sex: Male

DRUGS (1)
  1. FLECAINIDE [Suspect]
     Active Substance: FLECAINIDE
     Indication: ATRIAL FIBRILLATION
     Route: 048
     Dates: start: 20120815, end: 20170622

REACTIONS (5)
  - Dyspnoea [None]
  - Hypoxia [None]
  - Cough [None]
  - Wheezing [None]
  - Organising pneumonia [None]

NARRATIVE: CASE EVENT DATE: 20160526
